FAERS Safety Report 10192060 (Version 1)
Quarter: 2014Q2

REPORT INFORMATION
  Report Type: Spontaneous
  Country: TR (occurrence: TR)
  Receive Date: 20140523
  Receipt Date: 20140523
  Transmission Date: 20141212
  Serious: Yes (Hospitalization)
  Sender: FDA-Public Use
  Company Number: TR-BAYER-2014-074069

PATIENT
  Sex: Female

DRUGS (2)
  1. NIFEDIPINE [Suspect]
     Dosage: UNK
     Route: 064
  2. NIFEDIPINE [Suspect]
     Dosage: UNK
     Route: 064

REACTIONS (3)
  - Low birth weight baby [None]
  - Foetal exposure during pregnancy [None]
  - Apgar score low [None]
